FAERS Safety Report 8623655-4 (Version None)
Quarter: 2012Q3

REPORT INFORMATION
  Report Type: 
  Country: None (occurrence: None)
  Receive Date: 20120827
  Receipt Date: 20120823
  Transmission Date: 20120928
  Serious: Yes (Life-Threatening)
  Sender: FDA-Public Use
  Company Number: TW-PFIZER INC-2012207697

PATIENT

DRUGS (2)
  1. GEODON [Suspect]
     Dosage: UNK
     Route: 048
  2. GEODON [Suspect]
     Dosage: 240 MG, 1X/DAY
     Route: 048

REACTIONS (1)
  - ATRIOVENTRICULAR BLOCK [None]
